FAERS Safety Report 13439650 (Version 4)
Quarter: 2018Q3

REPORT INFORMATION
  Report Type: Report from Study
  Country: None (occurrence: US)
  Receive Date: 20170413
  Receipt Date: 20180829
  Transmission Date: 20181010
  Serious: Yes (Other)
  Sender: FDA-Public Use
  Company Number: US-ABBVIE-17K-163-1939364-00

PATIENT
  Age: 46 Year
  Sex: Female

DRUGS (2)
  1. HUMIRA [Suspect]
     Active Substance: ADALIMUMAB
     Route: 058
  2. HUMIRA [Suspect]
     Active Substance: ADALIMUMAB
     Indication: CROHN^S DISEASE
     Route: 058
     Dates: start: 201512

REACTIONS (16)
  - Intestinal obstruction [Recovered/Resolved]
  - Uterine polyp [Unknown]
  - Vomiting [Unknown]
  - Weight increased [Unknown]
  - Decreased appetite [Unknown]
  - Nausea [Unknown]
  - Pyrexia [Unknown]
  - Musculoskeletal discomfort [Unknown]
  - Abdominal adhesions [Unknown]
  - Chills [Unknown]
  - Fatigue [Unknown]
  - Liver disorder [Unknown]
  - Abdominal distension [Not Recovered/Not Resolved]
  - Night sweats [Unknown]
  - Gastrointestinal inflammation [Unknown]
  - Arthralgia [Unknown]

NARRATIVE: CASE EVENT DATE: 201512
